FAERS Safety Report 23960885 (Version 7)
Quarter: 2025Q2

REPORT INFORMATION
  Report Type: Report from Study
  Country: GB (occurrence: GB)
  Receive Date: 20240611
  Receipt Date: 20250605
  Transmission Date: 20250716
  Serious: Yes (Other)
  Sender: NOVARTIS
  Company Number: GB-002147023-NVSC2024GB047686

PATIENT
  Sex: Male

DRUGS (8)
  1. COSENTYX [Suspect]
     Active Substance: SECUKINUMAB
     Indication: Ankylosing spondylitis
     Route: 058
     Dates: start: 20240226
  2. COSENTYX [Suspect]
     Active Substance: SECUKINUMAB
     Indication: Multiple sclerosis
     Route: 058
  3. COSENTYX [Suspect]
     Active Substance: SECUKINUMAB
     Indication: Axial spondyloarthritis
     Route: 058
  4. COSENTYX [Suspect]
     Active Substance: SECUKINUMAB
     Dosage: 150 MG, QMO
     Route: 058
  5. VITAMIN D [Concomitant]
     Active Substance: VITAMIN D NOS
     Indication: Product used for unknown indication
     Route: 065
  6. MAVENCLAD [Concomitant]
     Active Substance: CLADRIBINE
     Indication: Product used for unknown indication
     Route: 065
  7. Pixaban [Concomitant]
     Indication: Product used for unknown indication
     Dosage: UNK, BID
     Route: 065
  8. ATORVASTATIN [Concomitant]
     Active Substance: ATORVASTATIN
     Indication: Product used for unknown indication
     Dosage: UNK, QD
     Route: 065

REACTIONS (19)
  - Optic neuritis [Recovered/Resolved]
  - Myocardial infarction [Unknown]
  - Cerebral thrombosis [Unknown]
  - Atrial fibrillation [Unknown]
  - Cerebral infarction [Unknown]
  - Ankylosing spondylitis [Unknown]
  - Pharyngeal ulceration [Unknown]
  - Spinal pain [Unknown]
  - Back pain [Unknown]
  - Discomfort [Unknown]
  - Abdominal pain upper [Unknown]
  - Fungal pharyngitis [Unknown]
  - Blood bilirubin increased [Unknown]
  - Tooth infection [Unknown]
  - Cardiac disorder [Unknown]
  - Gait disturbance [Unknown]
  - Product use in unapproved indication [Unknown]
  - White blood cell count decreased [Unknown]
  - Fatigue [Unknown]
